FAERS Safety Report 9981232 (Version 1)
Quarter: 2014Q1

REPORT INFORMATION
  Report Type: Spontaneous
  Country: CZ (occurrence: None)
  Receive Date: 20140305
  Receipt Date: 20140305
  Transmission Date: 20141002
  Serious: Yes (Other)
  Sender: FDA-Public Use
  Company Number: PL-ALKEM-000507

PATIENT
  Age: 23 Year
  Sex: Male

DRUGS (3)
  1. QUETIAPINE (QUETIAPINE) [Suspect]
     Indication: PRODUCT USED FOR UNKNOWN INDICATION
  2. CITALOPRAM (CITALOPRAM) [Suspect]
     Indication: PANIC ATTACK
  3. GLYCINE [Suspect]
     Indication: COGNITIVE DISORDER

REACTIONS (5)
  - Social avoidant behaviour [None]
  - Irritability [None]
  - Hypomania [None]
  - Agitation [None]
  - Libido increased [None]
